FAERS Safety Report 8698487 (Version 2)
Quarter: 2012Q4

REPORT INFORMATION
  Report Type: 
  Country: JP (occurrence: JP)
  Receive Date: 20120802
  Receipt Date: 20121206
  Transmission Date: 20130627
  Serious: Yes (Life-Threatening, Hospitalization)
  Sender: FDA-Public Use
  Company Number: JP-009507513-1207JPN011006

PATIENT
  Age: 9 Year
  Sex: Male
  Weight: 30 kg

DRUGS (4)
  1. ESLAX INTRAVENOUS 50MG/5.0ML [Suspect]
     Indication: NEUROMUSCULAR BLOCKING THERAPY
     Dosage: Dosage is uncertain during a day.dosage text :bolus
     Route: 042
     Dates: start: 20120724, end: 20120724
  2. DIPRIVAN [Concomitant]
     Indication: INDUCTION AND MAINTENANCE OF ANAESTHESIA
     Dosage: Divided dose frequency unknown
     Route: 042
     Dates: start: 20120724, end: 20120724
  3. DIPRIVAN [Concomitant]
     Indication: GENERAL ANAESTHESIA
  4. FENTANYL [Concomitant]
     Indication: GENERAL ANAESTHESIA
     Dosage: 0.5 mg,QD
     Route: 042
     Dates: start: 20120724, end: 20120724

REACTIONS (3)
  - Anaphylactic reaction [Recovered/Resolved]
  - Atelectasis [Recovered/Resolved]
  - Wheezing [None]
